FAERS Safety Report 19203007 (Version 2)
Quarter: 2021Q2

REPORT INFORMATION
  Report Type: Spontaneous
  Country: US (occurrence: US)
  Receive Date: 20210430
  Receipt Date: 20210603
  Transmission Date: 20210717
  Serious: Yes (Hospitalization)
  Sender: FDA-Public Use
  Company Number: US-ASTRAZENECA-2021A349497

PATIENT
  Age: 1057 Month
  Sex: Male
  Weight: 78.9 kg

DRUGS (6)
  1. SYMBICORT [Suspect]
     Active Substance: BUDESONIDE\FORMOTEROL FUMARATE DIHYDRATE
     Indication: ASTHMA
     Dosage: 160/4.5MCG 2 PUFFS TWICE DAILY
     Route: 055
     Dates: end: 202001
  2. FISH OIL [Concomitant]
     Active Substance: FISH OIL
     Dosage: STARTING 3 YEARS AGO
  3. SYMBICORT [Suspect]
     Active Substance: BUDESONIDE\FORMOTEROL FUMARATE DIHYDRATE
     Indication: ASTHMA
     Route: 055
     Dates: start: 20210329
  4. WARFARIN [Concomitant]
     Active Substance: WARFARIN
     Indication: BLOOD DISORDER
     Dosage: MONDAY, WEDNESDAY, FRIDAY, AND SUNDAY 2MG ONCE EACH DAY, AND THEN TAKES 3MG DAILY ON TUESDAY, THU...
     Route: 048
     Dates: start: 202001
  5. SYMBICORT [Suspect]
     Active Substance: BUDESONIDE\FORMOTEROL FUMARATE DIHYDRATE
     Indication: ASTHMA
     Dosage: GENERIC, 160/4.5MCG 2 PUFFS TWICE DAILY
     Route: 055
     Dates: start: 202001
  6. PROAIR RESPICLICK [Concomitant]
     Active Substance: ALBUTEROL SULFATE
     Indication: ASTHMA
     Dosage: STARTING 3 YEARS AGO AS REQUIRED
     Route: 055

REACTIONS (9)
  - Pneumonia [Recovered/Resolved]
  - Product dose omission issue [Unknown]
  - Cardiac fibrillation [Recovered/Resolved]
  - Product use issue [Recovered/Resolved]
  - Incorrect dose administered by device [Recovered/Resolved]
  - Wrong technique in device usage process [Unknown]
  - Device use issue [Unknown]
  - Drug delivery system malfunction [Unknown]
  - Device malfunction [Unknown]

NARRATIVE: CASE EVENT DATE: 202001
